FAERS Safety Report 5117654-7 (Version None)
Quarter: 2006Q3

REPORT INFORMATION
  Report Type: 
  Country: None (occurrence: None)
  Receive Date: 20060929
  Receipt Date: 20060619
  Transmission Date: 20061208
  Serious: Yes (Other)
  Sender: FDA-Public Use
  Company Number: DK-GILEAD-2006-0009813

PATIENT
  Sex: Male

DRUGS (5)
  1. TRUVADA [Suspect]
     Indication: HIV INFECTION
     Route: 048
     Dates: start: 20051111, end: 20060312
  2. STOCRIN [Suspect]
     Dates: start: 20051111, end: 20060201
  3. VIRAMUNE [Concomitant]
     Dates: start: 20060201, end: 20060313
  4. COMBIVIR [Concomitant]
     Dates: start: 20060313
  5. KALETRA [Concomitant]
     Dates: start: 20060313

REACTIONS (2)
  - GYNAECOMASTIA [None]
  - SYNCOPE [None]
